FAERS Safety Report 5843855-6 (Version None)
Quarter: 2008Q3

REPORT INFORMATION
  Report Type: 
  Country: None (occurrence: None)
  Receive Date: 20080813
  Receipt Date: 20080807
  Transmission Date: 20090109
  Serious: Yes (Death)
  Sender: FDA-Public Use
  Company Number: PHHY2008JP17377

PATIENT
  Age: 61 Year
  Sex: Female

DRUGS (1)
  1. EXJADE [Suspect]
     Indication: IRON OVERLOAD
     Dosage: 125 MG DAILY
     Route: 048
     Dates: start: 20080715, end: 20080723

REACTIONS (2)
  - BLOOD POTASSIUM INCREASED [None]
  - CARDIAC ARREST [None]
